FAERS Safety Report 16833264 (Version 2)
Quarter: 2019Q3

REPORT INFORMATION
  Report Type: Spontaneous
  Country: US (occurrence: US)
  Receive Date: 20190920
  Receipt Date: 20190920
  Transmission Date: 20191005
  Serious: Yes (Hospitalization)
  Sender: FDA-Public Use
  Company Number: US-PFIZER INC-2019394814

PATIENT
  Age: 37 Year
  Sex: Female

DRUGS (5)
  1. IBUPROFEN. [Suspect]
     Active Substance: IBUPROFEN
     Indication: PELVIC CONGESTION
     Dosage: 600 MG, 4X/DAY (EVERY 6 HOURS AS NEEDED)
  2. IBUPROFEN. [Suspect]
     Active Substance: IBUPROFEN
     Dosage: UNK (2 DOSES PER DAY WITH ACETAMINOPHEN)
  3. KETOROLAC TROMETHAMINE. [Suspect]
     Active Substance: KETOROLAC TROMETHAMINE
     Indication: PELVIC CONGESTION
     Dosage: 60 MG, UNK
     Route: 042
  4. ACETAMINOPHEN. [Suspect]
     Active Substance: ACETAMINOPHEN
     Indication: PELVIC CONGESTION
  5. ACETAMINOPHEN. [Suspect]
     Active Substance: ACETAMINOPHEN
     Indication: ABDOMINAL PAIN UPPER
     Dosage: UNK

REACTIONS (1)
  - Renal infarct [Recovering/Resolving]
